FAERS Safety Report 8065683-6 (Version None)
Quarter: 2012Q1

REPORT INFORMATION
  Report Type: 
  Country: None (occurrence: None)
  Receive Date: 20120124
  Receipt Date: 20120116
  Transmission Date: 20120608
  Serious: Yes (Hospitalization)
  Sender: FDA-Public Use
  Company Number: US-BAYER-2011-074651

PATIENT
  Age: 19 Year
  Sex: Female

DRUGS (2)
  1. SYNTHROID [Concomitant]
     Indication: HYPOTHYROIDISM
     Dosage: UNK
     Route: 048
     Dates: start: 19950101
  2. YAZ [Suspect]
     Indication: CONTRACEPTION
     Dosage: UNK
     Route: 048
     Dates: start: 20080929, end: 20090601

REACTIONS (3)
  - INJURY [None]
  - CHOLELITHIASIS [None]
  - CHOLECYSTITIS CHRONIC [None]
